FAERS Safety Report 26131982 (Version 1)
Quarter: 2025Q4

REPORT INFORMATION
  Report Type: Spontaneous
  Country: US (occurrence: None)
  Receive Date: 20251205
  Receipt Date: 20251205
  Transmission Date: 20260119
  Serious: Yes (Other)
  Sender: FDA-CTU
  Company Number: None

PATIENT
  Age: 34 Year
  Sex: Female
  Weight: 58.06 kg

DRUGS (3)
  1. MIRENA [Suspect]
     Active Substance: LEVONORGESTREL
  2. VYVANSE [Concomitant]
     Active Substance: LISDEXAMFETAMINE DIMESYLATE
  3. Ritual brank prenatal vitamin [Concomitant]

REACTIONS (3)
  - Hypomenorrhoea [None]
  - Uterine adhesions [None]
  - Infertility [None]

NARRATIVE: CASE EVENT DATE: 20251204
